FAERS Safety Report 16387786 (Version 2)
Quarter: 2019Q3

REPORT INFORMATION
  Report Type: Spontaneous
  Country: JP (occurrence: JP)
  Receive Date: 20190604
  Receipt Date: 20190806
  Transmission Date: 20191004
  Serious: Yes (Hospitalization, Other)
  Sender: FDA-Public Use
  Company Number: JP-009507513-1905JPN003611J

PATIENT
  Sex: Female
  Weight: 33 kg

DRUGS (5)
  1. MENESIT TABLETS - 100 [Suspect]
     Active Substance: CARBIDOPA\LEVODOPA
     Indication: PARKINSON^S DISEASE
     Dosage: 200 MILLIGRAM, TID
     Route: 048
  2. LAXOBERON [Concomitant]
     Active Substance: SODIUM PICOSULFATE
     Indication: CONSTIPATION
     Dosage: UNK UNK, PRN
  3. TERNELIN [Concomitant]
     Active Substance: TIZANIDINE
     Dosage: 2 DOSAGE FORM, TID
  4. SODIUM CHLORIDE. [Concomitant]
     Active Substance: SODIUM CHLORIDE
     Indication: ELECTROLYTE SUBSTITUTION THERAPY
     Dosage: 3 GRAM, TID
  5. RACOL-NF [Concomitant]
     Dosage: 300 MILLILITER, TID

REACTIONS (2)
  - Product use issue [Unknown]
  - Pneumonia aspiration [Recovered/Resolved]
